FAERS Safety Report 5360135-6 (Version None)
Quarter: 2007Q2

REPORT INFORMATION
  Report Type: 
  Country: None (occurrence: None)
  Receive Date: 20070618
  Receipt Date: 20070612
  Transmission Date: 20071010
  Serious: Yes (Death, Other)
  Sender: FDA-Public Use
  Company Number: PHBS2007IT09885

PATIENT
  Age: 4 Year

DRUGS (6)
  1. CYCLOSPORINE [Suspect]
     Indication: CORD BLOOD TRANSPLANT THERAPY
  2. MYCOPHENOLATE MOFETIL [Suspect]
     Indication: CORD BLOOD TRANSPLANT THERAPY
  3. STEROIDS NOS [Concomitant]
     Indication: CORD BLOOD TRANSPLANT THERAPY
  4. BUSULFAN [Concomitant]
  5. CYCLOPHOSPHAMIDE [Concomitant]
  6. ANTILYMPHOCYTE IMMUNOGLOBULIN (HORSE) [Concomitant]

REACTIONS (2)
  - ACUTE GRAFT VERSUS HOST DISEASE [None]
  - NEUROTOXICITY [None]
